FAERS Safety Report 23984340 (Version 1)
Quarter: 2024Q2

REPORT INFORMATION
  Report Type: Spontaneous
  Country: GB (occurrence: None)
  Receive Date: 20240618
  Receipt Date: 20240618
  Transmission Date: 20240716
  Serious: Yes (Other)
  Sender: FDA-Public Use
  Company Number: GB-Allegis Pharmaceuticals, LLC-APL202406-000035

PATIENT
  Age: 50 Year
  Sex: Male

DRUGS (1)
  1. NITROGLYCERIN [Suspect]
     Active Substance: NITROGLYCERIN
     Indication: Tilt table test
     Dosage: UNKNOWN

REACTIONS (2)
  - Cardiac arrest [Recovered/Resolved with Sequelae]
  - Product use in unapproved indication [Unknown]
